FAERS Safety Report 9491475 (Version 1)
Quarter: 2013Q1

REPORT INFORMATION
  Report Type: Not Available
  Country: US (occurrence: US)
  Receive Date: 20120619
  Receipt Date: 20120619
  Transmission Date: 20140127
  Serious: Yes (Hospitalization)
  Sender: FDA-Public Use
  Company Number: US-LUNDBECK-DKLU1077829

PATIENT
  Age: 26 Year
  Sex: Female

DRUGS (7)
  1. ONFI [Suspect]
     Indication: LENNOX-GASTAUT SYNDROME
     Route: 048
     Dates: start: 20110214, end: 201104
  2. ONFI [Suspect]
     Route: 048
     Dates: start: 201104, end: 201109
  3. ONFI [Suspect]
     Route: 048
     Dates: start: 201109
  4. ONFI [Suspect]
     Route: 048
     Dates: start: 201201
  5. FELBATOL [Concomitant]
     Indication: CONVULSION
  6. BANZEL [Concomitant]
     Indication: CONVULSION
  7. LAMICTAL [Concomitant]
     Indication: CONVULSION

REACTIONS (1)
  - Withdrawal syndrome [Recovered/Resolved]
